FAERS Safety Report 10877918 (Version 1)
Quarter: 2015Q1

REPORT INFORMATION
  Report Type: Spontaneous
  Country: CM (occurrence: None)
  Receive Date: 20150224
  Receipt Date: 20150224
  Transmission Date: 20150721
  Serious: Yes (Hospitalization, Other)
  Sender: FDA-Public Use
  Company Number: 2015AMD00028

PATIENT
  Age: 49 Year
  Sex: Male

DRUGS (2)
  1. ALBENDAZOLE [Suspect]
     Active Substance: ALBENDAZOLE
     Indication: FILARIASIS
     Dosage: 1 DOSAGE UNITS
  2. MECTIZAN [Suspect]
     Active Substance: IVERMECTIN
     Indication: FILARIASIS
     Dosage: 4 DOSAGE UNTIS

REACTIONS (2)
  - Conjunctival haemorrhage [None]
  - Abasia [None]

NARRATIVE: CASE EVENT DATE: 20140630
